FAERS Safety Report 26186487 (Version 1)
Quarter: 2025Q4

REPORT INFORMATION
  Report Type: Spontaneous
  Country: US (occurrence: None)
  Receive Date: 20251219
  Receipt Date: 20251219
  Transmission Date: 20260117
  Serious: Yes (Life-Threatening, Hospitalization)
  Sender: FDA-CTU
  Company Number: None

PATIENT
  Age: 73 Year
  Sex: Male
  Weight: 87 kg

DRUGS (1)
  1. PACLITAXEL [Suspect]
     Active Substance: PACLITAXEL
     Indication: Lung neoplasm malignant
     Dosage: 100 MG ONCE IV
     Route: 042
     Dates: start: 20250513, end: 20250602

REACTIONS (5)
  - Anaphylactic shock [None]
  - Heart rate increased [None]
  - Agonal respiration [None]
  - Unresponsive to stimuli [None]
  - Pulseless electrical activity [None]

NARRATIVE: CASE EVENT DATE: 20250604
